FAERS Safety Report 14967127 (Version 1)
Quarter: 2018Q2

REPORT INFORMATION
  Report Type: Spontaneous
  Country: AU (occurrence: AU)
  Receive Date: 20180604
  Receipt Date: 20180604
  Transmission Date: 20180711
  Serious: Yes (Other)
  Sender: FDA-Public Use
  Company Number: AU-CHEPLA-C20180205_01

PATIENT
  Age: 35 Year
  Sex: Female

DRUGS (4)
  1. PREDNISOLONE. [Concomitant]
     Active Substance: PREDNISOLONE
     Indication: PROPHYLAXIS
     Dosage: DAY 1 - 10
  2. ATO (ARSENIC TRIOXIDE) [Suspect]
     Active Substance: ARSENIC TRIOXIDE
     Indication: ACUTE PROMYELOCYTIC LEUKAEMIA
     Dosage: FROM DAY 9 ONWARDS
  3. ATRA [Suspect]
     Active Substance: TRETINOIN
     Indication: ACUTE PROMYELOCYTIC LEUKAEMIA
  4. IDARUBICIN [Suspect]
     Active Substance: IDARUBICIN
     Indication: ACUTE PROMYELOCYTIC LEUKAEMIA
     Dosage: ON DAY 2, 4, 6, 8

REACTIONS (7)
  - Retinal haemorrhage [Recovered/Resolved]
  - Chorioretinal disorder [Recovered/Resolved]
  - Febrile neutropenia [Unknown]
  - Angle closure glaucoma [Recovered/Resolved]
  - Chorioretinopathy [Recovered/Resolved]
  - Thrombocytopenia [Unknown]
  - Acute promyelocytic leukaemia differentiation syndrome [Unknown]
